FAERS Safety Report 22053182 (Version 1)
Quarter: 2023Q1

REPORT INFORMATION
  Report Type: Spontaneous
  Country: US (occurrence: US)
  Receive Date: 20230302
  Receipt Date: 20230302
  Transmission Date: 20230417
  Serious: Yes (Other)
  Sender: FDA-Public Use
  Company Number: US-STRIDES ARCOLAB LIMITED-2023SP003081

PATIENT
  Age: 61 Year
  Sex: Male

DRUGS (6)
  1. PREDNISOLONE [Suspect]
     Active Substance: PREDNISOLONE
     Indication: Diffuse large B-cell lymphoma
     Dosage: UNK, ALONG WITH RITUXIMAB, CYCLOPHOSPHAMIDE, DOXORUBICIN, VINCRISTINE. 6 CYCLES COMPLETED
     Route: 065
  2. DOXORUBICIN [Suspect]
     Active Substance: DOXORUBICIN
     Indication: Diffuse large B-cell lymphoma
     Dosage: UNK, ALONG WITH RITUXIMAB, CYCLOPHOSPHAMIDE, VINCRISTINE, PREDNISONE. 6 CYCLES COMPLETED
     Route: 065
  3. RITUXIMAB [Suspect]
     Active Substance: RITUXIMAB
     Indication: Diffuse large B-cell lymphoma
     Dosage: UNK, ALONG WITH CYCLOPHOSPHAMIDE, DOXORUBICIN, VINCRISTINE, PREDNISONE. 6 CYCLES COMPLETED
     Route: 065
  4. RITUXIMAB [Suspect]
     Active Substance: RITUXIMAB
     Dosage: 375 MILLIGRAM/SQ. METER, (ADMINISTERED EVERY 28 DAYS. 6 CYCLES COMPLETED)
     Route: 042
  5. CYCLOPHOSPHAMIDE [Suspect]
     Active Substance: CYCLOPHOSPHAMIDE
     Indication: Diffuse large B-cell lymphoma
     Dosage: UNK, ALONG WITH RITUXIMAB, DOXORUBICIN, VINCRISTINE, PREDNISONE. 6 CYCLES COMPLETED
     Route: 065
  6. VINCRISTINE [Suspect]
     Active Substance: VINCRISTINE
     Indication: Diffuse large B-cell lymphoma
     Dosage: UNK, ALONG WITH RITUXIMAB, CYCLOPHOSPHAMIDE, DOXORUBICIN, PREDNISONE. 6 CYCLES COMPLETED
     Route: 065

REACTIONS (1)
  - Cardiomyopathy [Unknown]
